FAERS Safety Report 10398075 (Version 3)
Quarter: 2014Q3

REPORT INFORMATION
  Report Type: Spontaneous
  Country: GB (occurrence: None)
  Receive Date: 20140818
  Receipt Date: 20140915
  Transmission Date: 20150326
  Serious: Yes (Death, Life-Threatening, Other)
  Sender: FDA-Public Use
  Company Number: 2014223848

PATIENT
  Age: 80 Year
  Sex: Female

DRUGS (7)
  1. DALTEPARIN SODIUM [Suspect]
     Active Substance: DALTEPARIN SODIUM
     Indication: THROMBOSIS PROPHYLAXIS
     Dosage: 500 DF, UNK, SUBCUTANEOUS
     Route: 058
     Dates: start: 20131010
  2. ASPIRIN (ASPIRIN) [Suspect]
     Active Substance: ASPIRIN
     Indication: ISCHAEMIC STROKE
     Dosage: 300 MG, UNK, ORAL
     Route: 048
     Dates: start: 20131007, end: 20131018
  3. ALTEPLASE (ALTEPLASE) [Concomitant]
     Active Substance: ALTEPLASE
  4. FRUSEMIDE (FRUSEMIDE) [Concomitant]
  5. ATORVASTATIN (ATORVASTATIN) [Concomitant]
     Active Substance: ATORVASTATIN
  6. PRADAXA [Concomitant]
     Active Substance: DABIGATRAN ETEXILATE MESYLATE
     Dosage: 110 MG, UNK, ORAL
     Route: 048
     Dates: start: 20131016
  7. IRBESARTAN (IRBESARTAN) [Concomitant]
     Active Substance: IRBESARTAN

REACTIONS (4)
  - Haemorrhagic stroke [None]
  - Cerebral infarction [None]
  - Ischaemic stroke [None]
  - Haemorrhagic transformation stroke [None]

NARRATIVE: CASE EVENT DATE: 20131019
